FAERS Safety Report 8950561 (Version 3)
Quarter: 2013Q1

REPORT INFORMATION
  Report Type: Spontaneous
  Country: US (occurrence: US)
  Receive Date: 20121207
  Receipt Date: 20130315
  Transmission Date: 20140127
  Serious: Yes (Hospitalization)
  Sender: FDA-Public Use
  Company Number: US-BAYER-2012-126904

PATIENT
  Age: 27 Year
  Sex: Female
  Weight: 63.49 kg

DRUGS (7)
  1. YASMIN [Suspect]
     Indication: PREMENSTRUAL SYNDROME
     Dosage: UNK
     Dates: start: 20050101, end: 2006
  2. YASMIN [Suspect]
     Indication: CONTRACEPTION
  3. YAZ [Suspect]
     Indication: CONTRACEPTION
  4. CELEXA [Concomitant]
     Dosage: 40 MG, EVERY DAY
     Route: 048
  5. SEROQUEL [Concomitant]
     Dosage: 200 MG, HS
     Route: 048
  6. TRAZODONE [Concomitant]
     Dosage: 800 MG, HS
     Route: 048
  7. AVELOX [Concomitant]

REACTIONS (12)
  - Pulmonary embolism [None]
  - Pulmonary embolism [None]
  - Pulmonary embolism [Recovered/Resolved]
  - Thrombosis [None]
  - Off label use [None]
  - Pain [None]
  - Pain [None]
  - Injury [None]
  - General physical health deterioration [None]
  - Anxiety [None]
  - Anhedonia [None]
  - Emotional distress [None]
